FAERS Safety Report 10085176 (Version 1)
Quarter: 2014Q2

REPORT INFORMATION
  Report Type: Report from Study
  Country: US (occurrence: US)
  Receive Date: 20140417
  Receipt Date: 20140417
  Transmission Date: 20141212
  Serious: Yes (Hospitalization)
  Sender: FDA-Public Use
  Company Number: US-B.I. PHARMACEUTICALS,INC./RIDGEFIELD-2014-BI-16607BI

PATIENT
  Age: 87 Year
  Sex: Female
  Weight: 64.4 kg

DRUGS (17)
  1. DABIGATRAN [Suspect]
     Indication: ATRIAL FIBRILLATION
     Dosage: 150 MG
     Route: 048
     Dates: start: 20110516, end: 20110530
  2. CARDIZEM CD [Suspect]
     Indication: HYPERTENSION
     Dosage: 360 MG
     Route: 048
     Dates: start: 20110510
  3. CARDIZEM CD [Suspect]
     Indication: ATRIAL FIBRILLATION
  4. LASIX [Suspect]
     Indication: POLYURIA
     Dosage: 20 MG
     Route: 048
     Dates: start: 20110502
  5. LISINOPRIL [Suspect]
     Indication: HYPERTENSION
     Dosage: 40 MG
     Route: 048
     Dates: start: 20110427
  6. HEMORRHOIDAL-HC [Concomitant]
     Indication: HAEMORRHOIDS
     Dosage: 25 MG
     Route: 054
     Dates: start: 20110526
  7. CELEXA [Concomitant]
     Indication: DEPRESSION
     Dosage: 10 MG
     Route: 048
     Dates: start: 20110510
  8. PROVENTIAL HFA;VENTOLIN HFA [Concomitant]
     Indication: WHEEZING
     Dosage: FORMULATION: INHALER, DAILY DOSE:108 MCG/ACL-2 PUFFS Q 6HRS PRN
     Route: 055
     Dates: start: 20110510
  9. ASPIRIN [Concomitant]
     Indication: CARDIOVASCULAR EVENT PROPHYLAXIS
     Dosage: 325 MG
     Route: 048
     Dates: start: 20110502
  10. PEPTO BISMOL [Concomitant]
     Indication: GASTROOESOPHAGEAL REFLUX DISEASE
     Dosage: 524 MG
     Route: 048
  11. GAS-X [Concomitant]
     Indication: FLATULENCE
     Dosage: DAILY DOSE: 125MG DAILY PRN
     Route: 048
     Dates: start: 20110209
  12. MACROBID [Concomitant]
     Indication: URINARY TRACT INFECTION
     Dosage: 100 MG
     Route: 048
     Dates: start: 20110209
  13. CALCIUM CITRATE [Concomitant]
     Indication: OSTEOPOROSIS
     Dosage: DAILY DOSE: UNK-BID
     Route: 048
  14. MIACALCIN [Concomitant]
     Indication: OSTEOPOROSIS
     Dosage: FORMULATION: SPRAY, ROUTE: NASAL SPRAY, DAILY DOSE: 200 UNIT/ACT 1 SPRAY DAILY
     Route: 050
  15. CULTURELLE PO [Concomitant]
     Indication: GASTROOESOPHAGEAL REFLUX DISEASE
     Dosage: DAILY DOSE: UNK-DAILY
     Route: 048
     Dates: start: 20110427
  16. PEPCID [Concomitant]
     Indication: GASTROOESOPHAGEAL REFLUX DISEASE
     Dosage: 20 MG
     Route: 048
  17. TYLENOL [Concomitant]
     Indication: PAIN
     Dosage: 500 MG
     Route: 048
     Dates: start: 20110427

REACTIONS (5)
  - Syncope [Recovered/Resolved]
  - Asthenia [Not Recovered/Not Resolved]
  - Dizziness [Recovered/Resolved]
  - Orthostatic hypotension [Recovered/Resolved]
  - Haemorrhoidal haemorrhage [Not Recovered/Not Resolved]
